FAERS Safety Report 9457406 (Version 1)
Quarter: 2013Q3

REPORT INFORMATION
  Report Type: Spontaneous
  Country: US (occurrence: US)
  Receive Date: 20130814
  Receipt Date: 20130814
  Transmission Date: 20140515
  Serious: No
  Sender: FDA-Public Use
  Company Number: US-B.I. PHARMACEUTICALS,INC./RIDGEFIELD-2013-BI-23705BP

PATIENT
  Age: 53 Year
  Sex: Female
  Weight: 107 kg

DRUGS (13)
  1. SPIRIVA [Suspect]
     Indication: ASTHMA
     Dosage: 18 MCG
     Route: 055
     Dates: start: 20130531, end: 20130728
  2. ALBUTEROL NEBULIZER [Concomitant]
     Indication: ASTHMA
     Dosage: STRENGTH: 1 VIAL; DAILY DOSE: 4 VIALS
     Route: 055
     Dates: start: 201307
  3. PRAVASTATIN [Concomitant]
     Indication: BLOOD CHOLESTEROL INCREASED
     Dosage: 40 MG
     Route: 048
     Dates: start: 2012
  4. ADVAIR INHALER [Concomitant]
     Indication: ASTHMA
     Dosage: 500 MCG
     Route: 055
     Dates: start: 2011
  5. GLIPIZIDE [Concomitant]
     Indication: DIABETES MELLITUS
     Dosage: 10 MG
     Route: 048
     Dates: start: 2012
  6. SINGULAIR [Concomitant]
     Indication: HOUSE DUST ALLERGY
     Dosage: 1 ANZ
     Route: 048
     Dates: start: 2012
  7. CENTRUM MULTIVITAMIN [Concomitant]
     Indication: ANAEMIA
     Dosage: 1 ANZ
     Route: 048
     Dates: start: 2012
  8. FAMOTIDINE [Concomitant]
     Indication: GASTROOESOPHAGEAL REFLUX DISEASE
     Dosage: 20 MG
     Route: 048
     Dates: start: 2012
  9. ALBUTEROL INHALER [Concomitant]
     Indication: ASTHMA
     Dosage: 6 PUF
     Route: 055
     Dates: start: 2011
  10. FISH OIL [Concomitant]
     Indication: BLOOD CHOLESTEROL INCREASED
     Dosage: 3600 MG
     Route: 048
     Dates: start: 201302
  11. LISINOPRIL [Concomitant]
     Indication: HYPERTENSION
     Dosage: 10 MG
     Route: 048
     Dates: start: 2012
  12. LORATIDINE [Concomitant]
     Indication: HOUSE DUST ALLERGY
     Dosage: 10 MG
     Route: 048
     Dates: start: 2012
  13. JANUVIA [Concomitant]
     Indication: DIABETES MELLITUS
     Dosage: 100 MG
     Route: 048
     Dates: start: 201302

REACTIONS (5)
  - Oropharyngeal pain [Not Recovered/Not Resolved]
  - Headache [Not Recovered/Not Resolved]
  - Dysphonia [Not Recovered/Not Resolved]
  - Visual acuity reduced [Not Recovered/Not Resolved]
  - Off label use [Recovered/Resolved]
